FAERS Safety Report 9522860 (Version 2)
Quarter: 2013Q4

REPORT INFORMATION
  Report Type: Spontaneous
  Country: CA (occurrence: CA)
  Receive Date: 20130913
  Receipt Date: 20131004
  Transmission Date: 20140711
  Serious: Yes (Hospitalization)
  Sender: FDA-Public Use
  Company Number: CA-GLAXOSMITHKLINE-A1022564A

PATIENT
  Sex: Female
  Weight: 76 kg

DRUGS (18)
  1. BENLYSTA [Suspect]
     Indication: SYSTEMIC LUPUS ERYTHEMATOSUS
     Dosage: 740MG MONTHLY
     Route: 042
     Dates: start: 20120704, end: 20131001
  2. MYFORTIC [Concomitant]
     Dosage: 540MG TWICE PER DAY
  3. TACROLIMUS [Concomitant]
     Dosage: 7MG PER DAY
  4. PREDNISONE [Concomitant]
     Dosage: 5MG PER DAY
  5. ASPIRIN [Concomitant]
     Dosage: 81MG PER DAY
  6. VALCYTE [Concomitant]
     Dosage: 450MG PER DAY
  7. SEPTRA [Concomitant]
     Dosage: 160MG THREE TIMES PER WEEK
  8. LIPIDIL [Concomitant]
     Dosage: 160MG PER DAY
  9. VITAMIN D [Concomitant]
     Dosage: 1000IU PER DAY
  10. NORVASC [Concomitant]
  11. INSULIN GLARGINE [Concomitant]
  12. DIAMICRON [Concomitant]
  13. FENOFIBRATE [Concomitant]
  14. PANTOLOC [Concomitant]
  15. CLONAZEPAM [Concomitant]
  16. COLACE [Concomitant]
  17. CLONAZEPAM [Concomitant]
  18. ATIVAN [Concomitant]

REACTIONS (6)
  - Therapeutic response unexpected [Unknown]
  - Blood pressure increased [Unknown]
  - Blood creatinine increased [Unknown]
  - Kidney fibrosis [Unknown]
  - Kidney transplant rejection [Unknown]
  - Blood creatinine abnormal [Unknown]
